FAERS Safety Report 4819007-5 (Version None)
Quarter: 2005Q4

REPORT INFORMATION
  Report Type: 
  Country: None (occurrence: None)
  Receive Date: 20051103
  Receipt Date: 20050909
  Transmission Date: 20060501
  Serious: Yes (Death)
  Sender: FDA-Public Use
  Company Number: SI-BRISTOL-MYERS SQUIBB COMPANY-13110655

PATIENT
  Age: 22 Year
  Sex: Male

DRUGS (4)
  1. ABILIFY [Suspect]
     Indication: SCHIZOPHRENIA, DISORGANISED TYPE
     Dosage: 07-JUN TO 09-JUN-2005: 5MG/DAY; 10-JUN TO 12-JUN-2005: 10 MG/DAY; 13-JUN TO 04-JUL-2005: 15MG/DAY
     Route: 048
     Dates: start: 20050607, end: 20050704
  2. SOLIAN [Concomitant]
     Route: 048
     Dates: start: 20040615, end: 20050704
  3. FLUZEPAM [Concomitant]
  4. DITAMIN [Concomitant]
     Route: 048
     Dates: start: 20050314, end: 20050616

REACTIONS (4)
  - COMPLETED SUICIDE [None]
  - PSYCHOTIC DISORDER [None]
  - SCHIZOPHRENIA [None]
  - SEDATION [None]
